FAERS Safety Report 5866468-9 (Version None)
Quarter: 2008Q3

REPORT INFORMATION
  Report Type: 
  Country: None (occurrence: None)
  Receive Date: 20080902
  Receipt Date: 20080821
  Transmission Date: 20090109
  Serious: Yes (Other)
  Sender: FDA-Public Use
  Company Number: PHHY2008DE19021

PATIENT
  Sex: Male

DRUGS (2)
  1. RASILEZ [Suspect]
     Dosage: 150 MG
     Dates: start: 20071201, end: 20080613
  2. RASILEZ [Suspect]
     Dosage: 300 MG
     Dates: start: 20080614, end: 20080714

REACTIONS (3)
  - FLUID RETENTION [None]
  - RENAL FAILURE [None]
  - WEIGHT INCREASED [None]
